FAERS Safety Report 11483091 (Version 1)
Quarter: 2015Q3

REPORT INFORMATION
  Report Type: Spontaneous
  Country: US (occurrence: US)
  Receive Date: 20150903
  Receipt Date: 20150903
  Transmission Date: 20151125
  Serious: Yes (Other)
  Sender: FDA-Public Use
  Company Number: US-ELI_LILLY_AND_COMPANY-US201204004214

PATIENT
  Age: 53 Year
  Sex: Male

DRUGS (4)
  1. XANAX                                   /USA/ [Concomitant]
  2. CYMBALTA [Suspect]
     Active Substance: DULOXETINE HYDROCHLORIDE
     Indication: MAJOR DEPRESSION
     Dosage: 60 MG, QD
     Route: 048
     Dates: start: 201112, end: 201203
  3. METFORMIN [Concomitant]
     Active Substance: METFORMIN HYDROCHLORIDE
  4. DOXEPIN [Concomitant]
     Active Substance: DOXEPIN

REACTIONS (2)
  - Dysuria [Recovered/Resolved]
  - Enuresis [Recovered/Resolved]
